FAERS Safety Report 8339324-4 (Version None)
Quarter: 2012Q2

REPORT INFORMATION
  Report Type: 
  Country: None (occurrence: None)
  Receive Date: 20120507
  Receipt Date: 20120501
  Transmission Date: 20120825
  Serious: Yes (Death)
  Sender: FDA-Public Use
  Company Number: DE-ACCORD-013269

PATIENT

DRUGS (2)
  1. GEMCITABINE [Suspect]
     Dosage: ON 1, 8, 22, AND 29 DAYS. BRAND NAME: GEMZAR (NON-MAH PRODUCT)
  2. CISPLATIN [Suspect]
     Dosage: ON DAYS 1, 8, 22, AND 29

REACTIONS (2)
  - DUODENAL ULCER HAEMORRHAGE [None]
  - OFF LABEL USE [None]
